FAERS Safety Report 7731151-1 (Version None)
Quarter: 2011Q3

REPORT INFORMATION
  Report Type: 
  Country: None (occurrence: None)
  Receive Date: 20110906
  Receipt Date: 20110906
  Transmission Date: 20111222
  Serious: Yes (Life-Threatening, Hospitalization)
  Sender: FDA-Public Use
  Company Number: None

PATIENT
  Age: 49 Year
  Sex: Female
  Weight: 66.224 kg

DRUGS (2)
  1. XOLAIR [Suspect]
     Indication: MULTIPLE ALLERGIES
     Dosage: 300 MG
     Route: 011
     Dates: start: 20070211, end: 20100110
  2. XOLAIR [Suspect]
     Indication: ASTHMA
     Dosage: 300 MG
     Route: 011
     Dates: start: 20070211, end: 20100110

REACTIONS (4)
  - CEREBROVASCULAR ACCIDENT [None]
  - INTESTINAL ISCHAEMIA [None]
  - BLOOD DISORDER [None]
  - MALAISE [None]
